FAERS Safety Report 4772915-6 (Version None)
Quarter: 2005Q3

REPORT INFORMATION
  Report Type: 
  Country: None (occurrence: None)
  Receive Date: 20050916
  Receipt Date: 20050907
  Transmission Date: 20060218
  Serious: Yes (Hospitalization, Disabling, Other)
  Sender: FDA-Public Use
  Company Number: 2005-04-1686

PATIENT
  Age: 32 Year
  Sex: Female
  Weight: 50 kg

DRUGS (4)
  1. PEG-INTRON [Suspect]
     Indication: HEPATITIS C
     Dosage: 80 MCG QW SUBCUTANEOUS; 60 MCG QW SUBCUTANEOUS
     Route: 058
     Dates: start: 20050308, end: 20050322
  2. PEG-INTRON [Suspect]
     Indication: HEPATITIS C
     Dosage: 80 MCG QW SUBCUTANEOUS; 60 MCG QW SUBCUTANEOUS
     Route: 058
     Dates: start: 20050329, end: 20050405
  3. REBETOL [Suspect]
     Indication: HEPATITIS C
     Dosage: 600 MG ORAL; 400 MG ORAL
     Route: 048
     Dates: start: 20050308, end: 20050324
  4. REBETOL [Suspect]
     Indication: HEPATITIS C
     Dosage: 600 MG ORAL; 400 MG ORAL
     Route: 048
     Dates: start: 20050325, end: 20050405

REACTIONS (5)
  - BRAIN ABSCESS [None]
  - HEARING IMPAIRED [None]
  - INFECTION IN AN IMMUNOCOMPROMISED HOST [None]
  - LOSS OF CONSCIOUSNESS [None]
  - MUSCULAR WEAKNESS [None]
